FAERS Safety Report 11749892 (Version 1)
Quarter: 2015Q4

REPORT INFORMATION
  Report Type: Spontaneous
  Country: US (occurrence: None)
  Receive Date: 20151117
  Receipt Date: 20151117
  Transmission Date: 20160304
  Serious: Yes (Hospitalization)
  Sender: FDA-Public Use
  Company Number: None

PATIENT
  Age: 65 Year

DRUGS (2)
  1. HUMALOG [Suspect]
     Active Substance: INSULIN LISPRO
  2. COUMADIN [Suspect]
     Active Substance: WARFARIN SODIUM

REACTIONS (6)
  - Dehydration [None]
  - Vomiting [None]
  - Pharyngitis streptococcal [None]
  - Atrial fibrillation [None]
  - Nephropathy [None]
  - Renal failure [None]
